FAERS Safety Report 8217224-8 (Version None)
Quarter: 2012Q1

REPORT INFORMATION
  Report Type: 
  Country: None (occurrence: None)
  Receive Date: 20120319
  Receipt Date: 20120313
  Transmission Date: 20120608
  Serious: No
  Sender: FDA-Public Use
  Company Number: US-PFIZER INC-2012048098

PATIENT
  Sex: Female

DRUGS (7)
  1. NEURONTIN [Suspect]
     Dosage: 600 MG, 3X/DAY
     Dates: start: 20090101, end: 20090101
  2. PROZAC [Concomitant]
     Indication: DEPRESSION
     Dosage: UNK
  3. GABAPENTIN [Suspect]
     Dosage: UNK
  4. NEURONTIN [Suspect]
     Dosage: 300 MG, UNK
     Dates: start: 20090101, end: 20090101
  5. NEURONTIN [Suspect]
     Dosage: 300 MG, 3X/DAY
     Dates: start: 20090101, end: 20090101
  6. NEURONTIN [Suspect]
     Dosage: 1 TABLET, EVERY 4 DAYS
     Dates: start: 20090101
  7. MELOXICAM [Concomitant]
     Dosage: UNK

REACTIONS (7)
  - DIZZINESS [None]
  - GASTROOESOPHAGEAL REFLUX DISEASE [None]
  - FEELING ABNORMAL [None]
  - DRUG INEFFECTIVE [None]
  - NAUSEA [None]
  - DIARRHOEA [None]
  - ABDOMINAL PAIN [None]
